FAERS Safety Report 5070065-5 (Version None)
Quarter: 2006Q3

REPORT INFORMATION
  Report Type: 
  Country: None (occurrence: None)
  Receive Date: 20060731
  Receipt Date: 20060717
  Transmission Date: 20061208
  Serious: Yes (Hospitalization)
  Sender: FDA-Public Use
  Company Number: 2006090841

PATIENT
  Age: 6 Day
  Sex: Female

DRUGS (1)
  1. ATARAX [Suspect]
     Indication: CHOLESTASIS OF PREGNANCY
     Dosage: TRANSMAMMARY
     Route: 063
     Dates: start: 20060614, end: 20060617

REACTIONS (8)
  - ASSISTED DELIVERY [None]
  - BLOOD GLUCOSE DECREASED [None]
  - DRUG EXPOSURE DURING PREGNANCY [None]
  - DRUG EXPOSURE VIA BREAST MILK [None]
  - EXTRASYSTOLES [None]
  - FEEDING DISORDER NEONATAL [None]
  - HYPOTONIA NEONATAL [None]
  - NEONATAL OVERSEDATION [None]
